FAERS Safety Report 6665193-4 (Version None)
Quarter: 2010Q2

REPORT INFORMATION
  Report Type: 
  Country: None (occurrence: None)
  Receive Date: 20100402
  Receipt Date: 20100329
  Transmission Date: 20101027
  Serious: Yes (Death)
  Sender: FDA-Public Use
  Company Number: PHHY2009JP07065

PATIENT
  Sex: Male

DRUGS (3)
  1. DIOVAN [Suspect]
     Indication: HYPERTENSION
     Dosage: 40 MG, QD
     Route: 048
     Dates: start: 20071030, end: 20071214
  2. LASIX [Concomitant]
     Dosage: 20 MG
     Route: 048
     Dates: start: 20071030, end: 20071214
  3. DIGOSIN [Concomitant]
     Dosage: 0.125 MG
     Route: 048
     Dates: start: 20071030, end: 20071214

REACTIONS (1)
  - DEATH [None]
